FAERS Safety Report 9318755 (Version 1)
Quarter: 2013Q2

REPORT INFORMATION
  Report Type: Spontaneous
  Country: US (occurrence: US)
  Receive Date: 20130530
  Receipt Date: 20130530
  Transmission Date: 20140414
  Serious: Yes (Hospitalization)
  Sender: FDA-Public Use
  Company Number: US-BRISTOL-MYERS SQUIBB COMPANY-18924530

PATIENT
  Age: 58 Year
  Sex: Male
  Weight: 102.04 kg

DRUGS (6)
  1. BYDUREON 2MG SUSPENSION [Suspect]
     Indication: TYPE 2 DIABETES MELLITUS
     Route: 058
     Dates: start: 201211
  2. KOMBIGLYZE XR [Concomitant]
     Route: 048
  3. JANUVIA [Concomitant]
     Route: 048
  4. GLIPIZIDE [Concomitant]
     Route: 048
  5. VYTORIN [Concomitant]
  6. LISINOPRIL [Concomitant]

REACTIONS (3)
  - Appendicitis [Unknown]
  - Weight decreased [Unknown]
  - Decreased appetite [Not Recovered/Not Resolved]
